FAERS Safety Report 5891825-4 (Version None)
Quarter: 2008Q3

REPORT INFORMATION
  Report Type: 
  Country: None (occurrence: None)
  Receive Date: 20080922
  Receipt Date: 20080910
  Transmission Date: 20090109
  Serious: Yes (Hospitalization)
  Sender: FDA-Public Use
  Company Number: FI-PFIZER INC-2008076026

PATIENT
  Sex: Female
  Weight: 75 kg

DRUGS (3)
  1. SU-011,248 [Suspect]
     Indication: BREAST CANCER
     Route: 048
     Dates: start: 20080515
  2. DOCETAXEL [Suspect]
     Route: 042
     Dates: start: 20080514
  3. NEUPOGEN [Concomitant]
     Indication: NEUTROPENIA
     Dosage: DAILY DOSE:480MCG-FREQ:DAILY
     Dates: start: 20080815, end: 20080821

REACTIONS (1)
  - HYPOTENSION [None]
